FAERS Safety Report 20100152 (Version 3)
Quarter: 2021Q4

REPORT INFORMATION
  Report Type: Spontaneous
  Country: IT (occurrence: IT)
  Receive Date: 20211123
  Receipt Date: 20211216
  Transmission Date: 20220303
  Serious: Yes (Other)
  Sender: FDA-Public Use
  Company Number: IT-NOVARTISPH-NVSC2021IT265089

PATIENT
  Age: 48 Year
  Sex: Male

DRUGS (4)
  1. COSENTYX [Suspect]
     Active Substance: SECUKINUMAB
     Indication: Psoriasis
     Dosage: UNK
     Route: 065
     Dates: start: 20210906
  2. COSENTYX [Suspect]
     Active Substance: SECUKINUMAB
     Dosage: 300 MG, QW (AT WEEKS 0, 1, 2, 3, AND 4, FOLLOWED BY MONTHLY INJECTIONS)
     Route: 058
     Dates: start: 20211122
  3. ATORVASTATIN [Concomitant]
     Active Substance: ATORVASTATIN
     Indication: Product used for unknown indication
     Dosage: 40 MG
     Route: 065
  4. NEBIVOLOL [Concomitant]
     Active Substance: NEBIVOLOL
     Indication: Product used for unknown indication
     Dosage: 2.5 MG
     Route: 065

REACTIONS (8)
  - Myocardial necrosis marker increased [Unknown]
  - Blood glucose increased [Unknown]
  - Blood bilirubin increased [Unknown]
  - Gamma-glutamyltransferase increased [Unknown]
  - Arthralgia [Unknown]
  - Hepatic steatosis [Unknown]
  - Cholelithiasis [Unknown]
  - Hepatic enzyme increased [Unknown]
